FAERS Safety Report 8014071-7 (Version None)
Quarter: 2011Q4

REPORT INFORMATION
  Report Type: 
  Country: None (occurrence: None)
  Receive Date: 20111223
  Receipt Date: 20111212
  Transmission Date: 20120403
  Serious: Yes (Death, Hospitalization, Disabling, Other)
  Sender: FDA-Public Use
  Company Number: FK201102959

PATIENT
  Sex: Male

DRUGS (1)
  1. MORPHINE SULFATE [Suspect]
     Indication: PAIN MANAGEMENT
     Dosage: SEE IMAGE
     Route: 042

REACTIONS (8)
  - DEEP VEIN THROMBOSIS [None]
  - AGITATION [None]
  - DELIRIUM [None]
  - PNEUMONIA [None]
  - RENAL FAILURE [None]
  - CONFUSIONAL STATE [None]
  - FEMUR FRACTURE [None]
  - NEUROTOXICITY [None]
